FAERS Safety Report 9340445 (Version 1)
Quarter: 2013Q2

REPORT INFORMATION
  Report Type: Spontaneous
  Country: US (occurrence: US)
  Receive Date: 20130610
  Receipt Date: 20130610
  Transmission Date: 20140414
  Serious: No
  Sender: FDA-Public Use
  Company Number: US-BAYER-2013-069942

PATIENT
  Sex: Female

DRUGS (1)
  1. GADAVIST [Suspect]
     Dosage: 6 ML, ONCE
     Route: 042
     Dates: start: 2013, end: 2013

REACTIONS (2)
  - Urticaria [None]
  - Erythema [None]
